FAERS Safety Report 21926747 (Version 1)
Quarter: 2023Q1

REPORT INFORMATION
  Report Type: Report from Study
  Country: US (occurrence: US)
  Receive Date: 20230130
  Receipt Date: 20230130
  Transmission Date: 20230418
  Serious: Yes (Other)
  Sender: FDA-Public Use
  Company Number: US-002147023-NVSC2023US017671

PATIENT
  Sex: Male

DRUGS (7)
  1. CLOBETASOL [Suspect]
     Active Substance: CLOBETASOL
     Indication: Psoriasis
     Dosage: UNK
     Route: 061
  2. RANITIDINE [Suspect]
     Active Substance: RANITIDINE
     Indication: Psoriasis
     Dosage: 300 MG, QD
     Route: 048
  3. DESONIDE [Suspect]
     Active Substance: DESONIDE
     Indication: Psoriasis
     Dosage: UNK
     Route: 061
  4. MELOXICAM [Suspect]
     Active Substance: MELOXICAM
     Indication: Psoriasis
     Dosage: 15 MG, QD
     Route: 048
  5. METOPROLOL SUCCINATE [Suspect]
     Active Substance: METOPROLOL SUCCINATE
     Indication: Psoriasis
     Dosage: 100 MG, QD
     Route: 048
  6. QUINAPRIL [Suspect]
     Active Substance: QUINAPRIL
     Indication: Psoriasis
     Dosage: 40 MG, QD
     Route: 048
  7. SPIRONOLACTONE [Suspect]
     Active Substance: SPIRONOLACTONE
     Indication: Psoriasis
     Dosage: 50 MG, QD
     Route: 048

REACTIONS (6)
  - Renal failure [Not Recovered/Not Resolved]
  - Fall [Not Recovered/Not Resolved]
  - Skin lesion [Not Recovered/Not Resolved]
  - Injury [Not Recovered/Not Resolved]
  - Psoriasis [Not Recovered/Not Resolved]
  - Product use in unapproved indication [Unknown]
